FAERS Safety Report 7425388-9 (Version None)
Quarter: 2011Q2

REPORT INFORMATION
  Report Type: 
  Country: None (occurrence: None)
  Receive Date: 20110420
  Receipt Date: 20110408
  Transmission Date: 20111010
  Serious: Yes (Hospitalization)
  Sender: FDA-Public Use
  Company Number: GR-ELI_LILLY_AND_COMPANY-GR201103006198

PATIENT
  Age: 43 Year
  Sex: Male

DRUGS (2)
  1. ZYPADHERA [Suspect]
     Indication: SCHIZOPHRENIA
     Dosage: 300 MG, UNK
     Route: 030
     Dates: start: 20110321, end: 20110321
  2. ZYPREXA [Suspect]
     Dosage: UNK, UNKNOWN
     Route: 065

REACTIONS (4)
  - BLOOD PRESSURE DECREASED [None]
  - SYNCOPE [None]
  - ADVERSE EVENT [None]
  - LETHARGY [None]
